FAERS Safety Report 5603672-9 (Version None)
Quarter: 2008Q1

REPORT INFORMATION
  Report Type: 
  Country: None (occurrence: None)
  Receive Date: 20080123
  Receipt Date: 20080108
  Transmission Date: 20080703
  Serious: Yes (Hospitalization)
  Sender: FDA-Public Use
  Company Number: 238755K07USA

PATIENT
  Age: 33 Year
  Sex: Female

DRUGS (5)
  1. REBIF [Suspect]
     Indication: MULTIPLE SCLEROSIS
     Dosage: 3 IN 1 WEEKS, SUBCUTANEOUS
     Route: 058
     Dates: start: 20070509, end: 20070915
  2. REBIF [Suspect]
     Indication: MULTIPLE SCLEROSIS
     Dosage: 3 IN 1 WEEKS, SUBCUTANEOUS
     Route: 058
     Dates: start: 20080108
  3. BETASERON [Suspect]
  4. PROVIGIL [Concomitant]
  5. ANTIVERT [Concomitant]

REACTIONS (3)
  - HEPATIC ENZYME INCREASED [None]
  - MALIGNANT MELANOMA [None]
  - PAIN [None]
